FAERS Safety Report 22149506 (Version 2)
Quarter: 2023Q2

REPORT INFORMATION
  Report Type: Report from Study
  Country: BR (occurrence: None)
  Receive Date: 20230329
  Receipt Date: 20230516
  Transmission Date: 20230721
  Serious: Yes (Other)
  Sender: FDA-Public Use
  Company Number: BR-Merck Healthcare KGaA-9351170

PATIENT
  Age: 49 Year
  Sex: Female

DRUGS (4)
  1. INTERFERON BETA-1A [Suspect]
     Active Substance: INTERFERON BETA-1A
     Indication: Multiple sclerosis
     Route: 058
     Dates: start: 20200305
  2. HYDROCHLOROTHIAZIDE [Concomitant]
     Active Substance: HYDROCHLOROTHIAZIDE
     Indication: Product used for unknown indication
  3. CORUS [LOSARTAN POTASSIUM] [Concomitant]
     Indication: Product used for unknown indication
     Dosage: CORUS 50 2 TABLET
  4. NITRENDIPINE [Concomitant]
     Active Substance: NITRENDIPINE
     Indication: Product used for unknown indication

REACTIONS (7)
  - Effusion [Unknown]
  - Meniscus injury [Recovering/Resolving]
  - Joint injury [Recovering/Resolving]
  - Ligament sprain [Recovering/Resolving]
  - Pain [Unknown]
  - Joint swelling [Recovering/Resolving]
  - Arthralgia [Recovering/Resolving]

NARRATIVE: CASE EVENT DATE: 20220804
